FAERS Safety Report 17121358 (Version 2)
Quarter: 2020Q2

REPORT INFORMATION
  Report Type: Spontaneous
  Country: US (occurrence: US)
  Receive Date: 20191206
  Receipt Date: 20200529
  Transmission Date: 20200713
  Serious: No
  Sender: FDA-Public Use
  Company Number: US-UCBSA-2017020107

PATIENT
  Age: 46 Year
  Sex: Female

DRUGS (1)
  1. CIMZIA [Suspect]
     Active Substance: CERTOLIZUMAB PEGOL
     Indication: PRODUCT USED FOR UNKNOWN INDICATION
     Dosage: UNK

REACTIONS (8)
  - Arthralgia [Unknown]
  - Headache [Unknown]
  - Joint range of motion decreased [Unknown]
  - Pain in extremity [Unknown]
  - Product dose omission [Unknown]
  - Tenderness [Unknown]
  - Hypersensitivity [Unknown]
  - Dry mouth [Unknown]

NARRATIVE: CASE EVENT DATE: 20170518
